FAERS Safety Report 18689442 (Version 1)
Quarter: 2020Q4

REPORT INFORMATION
  Report Type: Spontaneous
  Country: FR (occurrence: FR)
  Receive Date: 20201231
  Receipt Date: 20201231
  Transmission Date: 20210114
  Serious: Yes (Hospitalization)
  Sender: FDA-Public Use
  Company Number: FR-JNJFOC-20201235375

PATIENT
  Age: 71 Year
  Sex: Male

DRUGS (4)
  1. COSENTYX [Suspect]
     Active Substance: SECUKINUMAB
     Indication: DERMATITIS
     Route: 058
     Dates: start: 20181203, end: 20201112
  2. NEORAL [Suspect]
     Active Substance: CYCLOSPORINE
     Indication: DERMATITIS
     Route: 048
     Dates: start: 201512, end: 20160115
  3. STELARA [Suspect]
     Active Substance: USTEKINUMAB
     Indication: DERMATITIS
     Dosage: ; CYCLICAL
     Route: 058
     Dates: start: 20160411, end: 201811
  4. HUMIRA [Suspect]
     Active Substance: ADALIMUMAB
     Indication: DERMATITIS
     Route: 058
     Dates: start: 20140825, end: 201512

REACTIONS (3)
  - Product use in unapproved indication [Unknown]
  - Cholangiocarcinoma [Not Recovered/Not Resolved]
  - Off label use [Unknown]

NARRATIVE: CASE EVENT DATE: 20160411
